FAERS Safety Report 9334366 (Version 1)
Quarter: 2013Q2

REPORT INFORMATION
  Report Type: Spontaneous
  Country: US (occurrence: US)
  Receive Date: 20130606
  Receipt Date: 20130606
  Transmission Date: 20140414
  Serious: No
  Sender: FDA-Public Use
  Company Number: US-AMGEN-USASP2013023577

PATIENT
  Age: 69 Year
  Sex: Female

DRUGS (3)
  1. PROLIA [Suspect]
     Indication: OSTEOPOROSIS POSTMENOPAUSAL
     Dosage: UNK
     Dates: start: 20130213
  2. ARTHRITIS PAIN [Concomitant]
     Indication: ARTHRITIS
  3. PAIN RELIEVER [Concomitant]
     Indication: ARTHRITIS

REACTIONS (8)
  - Hypoaesthesia [Unknown]
  - Muscular weakness [Unknown]
  - Grip strength decreased [Unknown]
  - Gait disturbance [Unknown]
  - Sleep disorder [Unknown]
  - Myalgia [Unknown]
  - Arthralgia [Unknown]
  - Pain in extremity [Unknown]
